FAERS Safety Report 5658405-7 (Version None)
Quarter: 2008Q1

REPORT INFORMATION
  Report Type: 
  Country: None (occurrence: None)
  Receive Date: 20080310
  Receipt Date: 20070212
  Transmission Date: 20080703
  Serious: No
  Sender: FDA-Public Use
  Company Number: US-BAYER-200710489BCC

PATIENT
  Sex: Male
  Weight: 73 kg

DRUGS (7)
  1. ALEVE [Suspect]
     Indication: HEADACHE
     Dosage: UNIT DOSE: 220 MG
     Route: 048
  2. DIABETES MEDICATION [Concomitant]
  3. ATROVENT [Concomitant]
  4. RANITIDINE [Concomitant]
  5. BENAZEPRIL HYDROCHLORIDE [Concomitant]
  6. METFORMIN HCL [Concomitant]
  7. ZOLPIDEM [Concomitant]

REACTIONS (1)
  - STOMACH DISCOMFORT [None]
